FAERS Safety Report 8348003-9 (Version None)
Quarter: 2012Q2

REPORT INFORMATION
  Report Type: 
  Country: None (occurrence: None)
  Receive Date: 20120509
  Receipt Date: 20120430
  Transmission Date: 20120825
  Serious: Yes (Death, Hospitalization)
  Sender: FDA-Public Use
  Company Number: US-JNJFOC-20080104622

PATIENT
  Sex: Female
  Weight: 50.35 kg

DRUGS (27)
  1. INFLIXIMAB [Suspect]
     Dates: start: 20031021
  2. PREDNISONE TAB [Concomitant]
     Indication: CROHN'S DISEASE
  3. INFLIXIMAB [Suspect]
     Dates: start: 20020729
  4. INFLIXIMAB [Suspect]
     Dates: start: 20020923
  5. UNSPECIFIED NARCOTIC [Concomitant]
     Indication: CROHN'S DISEASE
  6. INFLIXIMAB [Suspect]
     Indication: CROHN'S DISEASE
     Dates: start: 20020405
  7. INFLIXIMAB [Suspect]
     Dates: start: 20020603
  8. INFLIXIMAB [Suspect]
     Dates: start: 20030825
  9. INFLIXIMAB [Suspect]
     Dates: start: 20040924
  10. ANTIHISTAMINES [Concomitant]
     Indication: PREMEDICATION
     Dates: start: 20020103, end: 20041119
  11. INFLIXIMAB [Suspect]
     Dates: start: 20021118
  12. INFLIXIMAB [Suspect]
     Dates: start: 20040601
  13. INFLIXIMAB [Suspect]
     Dates: start: 20041119
  14. ANTIDEPRESSANTS [Concomitant]
  15. INFLIXIMAB [Suspect]
     Dates: start: 20030630
  16. INFLIXIMAB [Suspect]
     Dates: start: 20040730
  17. ADALIMUMAB [Concomitant]
     Indication: CROHN'S DISEASE
  18. INFLIXIMAB [Suspect]
     Dates: start: 20031216
  19. INFLIXIMAB [Suspect]
     Dates: start: 20040210
  20. INFLIXIMAB [Suspect]
     Dates: start: 20020218
  21. ACETAMINOPHREN [Concomitant]
     Indication: PREMEDICATION
     Dates: start: 20020103, end: 20030630
  22. INFLIXIMAB [Suspect]
     Dates: start: 20030310
  23. INFLIXIMAB [Suspect]
     Dates: start: 20040406
  24. INFLIXIMAB [Suspect]
     Dates: start: 20020103
  25. MERCAPTOPURINE [Concomitant]
     Indication: CROHN'S DISEASE
  26. INFLIXIMAB [Suspect]
     Dates: start: 20030113
  27. INFLIXIMAB [Suspect]
     Dates: start: 20030505

REACTIONS (1)
  - EMPHYSEMA [None]
